FAERS Safety Report 5802268-3 (Version None)
Quarter: 2008Q3

REPORT INFORMATION
  Report Type: 
  Country: None (occurrence: None)
  Receive Date: 20080707
  Receipt Date: 20080625
  Transmission Date: 20090109
  Serious: Yes (Other)
  Sender: FDA-Public Use
  Company Number: KR-PFIZER INC-2008054237

PATIENT
  Sex: Male

DRUGS (2)
  1. LYRICA [Suspect]
     Route: 048
  2. DRUG USED IN DIABETES [Concomitant]
     Indication: DIABETES MELLITUS

REACTIONS (2)
  - EYE INFLAMMATION [None]
  - VISUAL ACUITY REDUCED [None]
